FAERS Safety Report 13342864 (Version 1)
Quarter: 2017Q1

REPORT INFORMATION
  Report Type: Spontaneous
  Country: US (occurrence: US)
  Receive Date: 20170316
  Receipt Date: 20170316
  Transmission Date: 20170428
  Serious: No
  Sender: FDA-Public Use
  Company Number: US-PFIZER INC-2017108800

PATIENT
  Sex: Male

DRUGS (2)
  1. ADVIL [Suspect]
     Active Substance: IBUPROFEN
     Indication: PAIN
     Dosage: 2 DF, UNK (TWO TABLETS)
  2. ADVIL [Suspect]
     Active Substance: IBUPROFEN
     Dosage: 3 DF, UNK (BUT 3 WORK PERFECTLY)

REACTIONS (2)
  - Drug ineffective [Unknown]
  - Intentional product use issue [Unknown]
